FAERS Safety Report 5776918-4 (Version None)
Quarter: 2008Q2

REPORT INFORMATION
  Report Type: 
  Country: None (occurrence: None)
  Receive Date: 20080617
  Receipt Date: 20080617
  Transmission Date: 20081010
  Serious: No
  Sender: FDA-Public Use
  Company Number: None

PATIENT
  Age: 20 Year
  Sex: Female
  Weight: 83 kg

DRUGS (3)
  1. AMOXICILLIN [Suspect]
     Indication: TONSILLITIS
     Dosage: 2 TAB PO QD
     Route: 048
     Dates: start: 20080219, end: 20080226
  2. TYLENOL PM [Concomitant]
  3. ASPIRIN [Concomitant]

REACTIONS (4)
  - LEUKOCYTOCLASTIC VASCULITIS [None]
  - OEDEMA PERIPHERAL [None]
  - RASH [None]
  - SELF-MEDICATION [None]
